FAERS Safety Report 5124490-4 (Version None)
Quarter: 2006Q4

REPORT INFORMATION
  Report Type: 
  Country: None (occurrence: None)
  Receive Date: 20060821
  Receipt Date: 20060501
  Transmission Date: 20070319
  Serious: No
  Sender: FDA-Public Use
  Company Number: TPA2006A00488

PATIENT
  Age: 36 Year
  Sex: Male
  Weight: 78.4723 kg

DRUGS (8)
  1. ROZEREM [Suspect]
     Indication: NECK PAIN
     Dosage: 8 MG, HS, PER ORAL
     Route: 048
     Dates: start: 20060308
  2. ROZEREM [Suspect]
     Indication: SLEEP DISORDER
     Dosage: 8 MG, HS, PER ORAL
     Route: 048
     Dates: start: 20060308
  3. TRAZODONE HCL [Concomitant]
  4. CYCLOBENZAPRINE HCL [Concomitant]
  5. CLARINEX [Concomitant]
  6. ACETAMINOPHEN [Concomitant]
  7. ADVIL [Concomitant]
  8. ULTRAM [Concomitant]

REACTIONS (2)
  - HYPERAESTHESIA [None]
  - LIBIDO DECREASED [None]
